FAERS Safety Report 20410624 (Version 1)
Quarter: 2022Q1

REPORT INFORMATION
  Report Type: Spontaneous
  Country: US (occurrence: None)
  Receive Date: 20220131
  Receipt Date: 20220131
  Transmission Date: 20220423
  Serious: No
  Sender: FDA-Public Use
  Company Number: None

PATIENT
  Age: 60 Year
  Sex: Male

DRUGS (1)
  1. VALSARTAN [Suspect]
     Active Substance: VALSARTAN
     Dosage: FREQUENCY : TWICE A DAY;?
     Route: 048
     Dates: start: 20210225, end: 20211206

REACTIONS (2)
  - Cough [None]
  - Wheezing [None]

NARRATIVE: CASE EVENT DATE: 20211206
